FAERS Safety Report 10195274 (Version 1)
Quarter: 2014Q2

REPORT INFORMATION
  Report Type: Spontaneous
  Country: US (occurrence: US)
  Receive Date: 20140526
  Receipt Date: 20140526
  Transmission Date: 20141212
  Serious: Yes (Other)
  Sender: FDA-Public Use
  Company Number: US-JNJFOC-20140511112

PATIENT
  Age: 64 Year
  Sex: Male

DRUGS (4)
  1. XARELTO [Suspect]
     Indication: THROMBOSIS
     Route: 048
     Dates: start: 201310, end: 2013
  2. XARELTO [Suspect]
     Indication: THROMBOSIS
     Route: 048
     Dates: start: 2013
  3. LISINOPRIL HCTZ [Concomitant]
     Indication: BLOOD PRESSURE
     Dosage: 20 - 12.5 MG, A WHILE AGO
     Route: 065
  4. FINASTERIDE [Concomitant]
     Indication: PROSTATIC DISORDER
     Dosage: SEVERAL YEARS AGO
     Route: 065

REACTIONS (2)
  - Arthritis [Not Recovered/Not Resolved]
  - Respiratory disorder [Not Recovered/Not Resolved]
